FAERS Safety Report 19159784 (Version 3)
Quarter: 2021Q2

REPORT INFORMATION
  Report Type: Report from Study
  Country: US (occurrence: US)
  Receive Date: 20210420
  Receipt Date: 20210625
  Transmission Date: 20210717
  Serious: Yes (Death, Hospitalization, Other)
  Sender: FDA-Public Use
  Company Number: US-TAKEDA-US201942564

PATIENT
  Age: 20 Year
  Sex: Male

DRUGS (5)
  1. IDURSULFASE [Suspect]
     Active Substance: IDURSULFASE
     Dosage: 0.5 MILLIGRAM/KILOGRAM, 1/WEEK
     Route: 042
     Dates: start: 20080122
  2. IDURSULFASE [Suspect]
     Active Substance: IDURSULFASE
     Dosage: 0.58 MILLIGRAM/KILOGRAM, 1/WEEK
     Route: 042
     Dates: start: 20070627
  3. IDURSULFASE [Suspect]
     Active Substance: IDURSULFASE
     Dosage: 0.63 MILLIGRAM/KILOGRAM, 1X/WEEK
     Route: 042
     Dates: start: 20081202, end: 20130808
  4. IDURSULFASE [Suspect]
     Active Substance: IDURSULFASE
     Dosage: 0.61 MILLIGRAM/KILOGRAM, 1/WEEK
     Route: 042
     Dates: start: 20070919
  5. IDURSULFASE [Suspect]
     Active Substance: IDURSULFASE
     Indication: MUCOPOLYSACCHARIDOSIS II
     Dosage: UNK
     Route: 042
     Dates: start: 20050818

REACTIONS (7)
  - Flushing [Recovered/Resolved]
  - Hypertension [Recovered/Resolved]
  - Decubitus ulcer [Recovered/Resolved]
  - Tachycardia [Recovered/Resolved]
  - Pneumonia bacterial [Recovered/Resolved]
  - Intestinal obstruction [Fatal]
  - Face oedema [Recovered/Resolved]

NARRATIVE: CASE EVENT DATE: 20061207
